FAERS Safety Report 16890023 (Version 1)
Quarter: 2019Q4

REPORT INFORMATION
  Report Type: Spontaneous
  Country: JP (occurrence: JP)
  Receive Date: 20191007
  Receipt Date: 20191007
  Transmission Date: 20200122
  Serious: Yes (Other)
  Sender: FDA-Public Use
  Company Number: JP-SUN PHARMACEUTICAL INDUSTRIES LTD-2019RR-222899

PATIENT
  Age: 56 Year
  Sex: Female

DRUGS (4)
  1. WARFARIN [Suspect]
     Active Substance: WARFARIN
     Indication: LEMIERRE SYNDROME
     Dosage: UNK
     Route: 065
  2. AMPICILLIN/SULBACTAM [Suspect]
     Active Substance: AMPICILLIN SODIUM\SULBACTAM SODIUM
     Indication: LEMIERRE SYNDROME
     Dosage: UNK
     Route: 065
  3. CLINDAMYCIN. [Suspect]
     Active Substance: CLINDAMYCIN
     Indication: LEMIERRE SYNDROME
     Dosage: UNK
     Route: 065
  4. PREDNISOLONE. [Suspect]
     Active Substance: PREDNISOLONE
     Indication: LUPUS NEPHRITIS
     Dosage: 20 MILLIGRAM, DAILY
     Route: 065

REACTIONS (4)
  - Lemierre syndrome [Recovering/Resolving]
  - Drug eruption [Recovering/Resolving]
  - Neutropenia [Recovering/Resolving]
  - Liver disorder [Recovering/Resolving]
